FAERS Safety Report 20099092 (Version 1)
Quarter: 2021Q4

REPORT INFORMATION
  Report Type: Report from Study
  Country: IN (occurrence: IN)
  Receive Date: 20211122
  Receipt Date: 20211122
  Transmission Date: 20220303
  Serious: Yes (Other)
  Sender: FDA-Public Use
  Company Number: IN-MYLANLABS-2021M1086039

PATIENT
  Age: 18 Month
  Sex: Female

DRUGS (1)
  1. NEVIRAPINE [Suspect]
     Active Substance: NEVIRAPINE
     Indication: Prophylaxis against HIV infection
     Dosage: 2 MILLIGRAM/KILOGRAM, FORMULATION: SYRUP
     Route: 065

REACTIONS (1)
  - Drug ineffective [Unknown]
